FAERS Safety Report 5636209-9 (Version None)
Quarter: 2008Q1

REPORT INFORMATION
  Report Type: 
  Country: None (occurrence: None)
  Receive Date: 20080220
  Receipt Date: 20080220
  Transmission Date: 20080703
  Serious: Yes (Hospitalization)
  Sender: FDA-Public Use
  Company Number: None

PATIENT
  Sex: Male
  Weight: 86 kg

DRUGS (9)
  1. G-CSF (FILGRASTIM, AMGEN) [Suspect]
     Dosage: 4800
  2. CYTARABINE [Suspect]
     Dosage: 4020 MG
  3. DEXAMETHASONE TAB [Suspect]
     Dosage: 100 MG
  4. ETOPOSIDE [Suspect]
  5. IFOSFAMIDE [Suspect]
     Dosage: 8040 MG
  6. LEUCOVORIN CALCIUM [Suspect]
     Dosage: 130 MG
  7. MESNA [Suspect]
     Dosage: 6030 MG
  8. METHOTREXATE [Suspect]
     Dosage: 3031 MG
  9. RITUXIMAB (MOAB C2B8 ANTI CD20, CHIMERIC) [Suspect]
     Dosage: 754 MG

REACTIONS (3)
  - BACK PAIN [None]
  - BONE PAIN [None]
  - CONDITION AGGRAVATED [None]
